FAERS Safety Report 8428066 (Version 3)
Quarter: 2013Q3

REPORT INFORMATION
  Report Type: Report from Study
  Country: FR (occurrence: FR)
  Receive Date: 20120227
  Receipt Date: 20130828
  Transmission Date: 20140515
  Serious: Yes (Death, Life-Threatening)
  Sender: FDA-Public Use
  Company Number: FR-ROCHE-1042187

PATIENT
  Age: 70 Year
  Sex: Female
  Weight: 67 kg

DRUGS (15)
  1. BEVACIZUMAB [Suspect]
     Indication: BRAIN NEOPLASM MALIGNANT
     Route: 065
     Dates: start: 20120111, end: 20120208
  2. BEVACIZUMAB [Suspect]
     Dosage: D1 CYCLE2
     Route: 065
     Dates: start: 20120209
  3. TEMOZOLOMIDE [Suspect]
     Indication: BRAIN NEOPLASM MALIGNANT
     Route: 065
     Dates: start: 20120111, end: 20120213
  4. TEMOZOLOMIDE [Suspect]
     Route: 065
     Dates: start: 20120213, end: 20120213
  5. TEMOZOLOMIDE [Suspect]
     Dosage: D1 CYCLE2
     Route: 065
     Dates: start: 20120209
  6. MEDROL [Suspect]
     Indication: PRODUCT USED FOR UNKNOWN INDICATION
     Route: 048
  7. MEDROL [Suspect]
     Route: 048
  8. DIFFU K [Concomitant]
     Indication: HYPOKALAEMIA
     Route: 048
  9. INEXIUM [Concomitant]
     Route: 048
  10. PARACETAMOL [Concomitant]
     Route: 048
  11. ACTRAPID [Concomitant]
     Dosage: IF NECESSARY
     Route: 058
  12. LASIX [Concomitant]
     Route: 065
  13. RAMIPRIL [Concomitant]
     Route: 065
  14. PRAVASTATIN [Concomitant]
     Route: 065
  15. LOVENOX [Concomitant]
     Route: 065

REACTIONS (4)
  - Death [Fatal]
  - Pleural effusion [Unknown]
  - Lung infection [Unknown]
  - Large intestine perforation [Fatal]
